FAERS Safety Report 23631782 (Version 1)
Quarter: 2024Q1

REPORT INFORMATION
  Report Type: Spontaneous
  Country: US (occurrence: US)
  Receive Date: 20240314
  Receipt Date: 20240314
  Transmission Date: 20240410
  Serious: No
  Sender: FDA-Public Use
  Company Number: US-INSUD PHARMA-2403US02071

PATIENT

DRUGS (1)
  1. SLYND [Suspect]
     Active Substance: DROSPIRENONE
     Indication: Menstrual cycle management
     Dosage: UNKNOWN
     Route: 048

REACTIONS (3)
  - Amenorrhoea [Recovered/Resolved]
  - Product prescribing issue [Unknown]
  - Drug effective for unapproved indication [Unknown]
